FAERS Safety Report 9107456 (Version 3)
Quarter: 2013Q2

REPORT INFORMATION
  Report Type: Report from Study
  Country: US (occurrence: US)
  Receive Date: 20130221
  Receipt Date: 20130529
  Transmission Date: 20140414
  Serious: No
  Sender: FDA-Public Use
  Company Number: US-ABBOTT-13P-163-1049714-00

PATIENT
  Age: 73 Year
  Sex: Male
  Weight: 70.82 kg

DRUGS (8)
  1. HUMIRA [Suspect]
     Indication: CROHN^S DISEASE
     Dosage: LOADING DOSE
     Dates: start: 20121228
  2. HUMIRA [Suspect]
     Dosage: LOADING DOSE (ONLY RECEIVED 40 MG)
     Dates: start: 20130111, end: 20130111
  3. HUMIRA [Suspect]
     Dosage: LOADING DOSE
     Dates: start: 20130115, end: 201304
  4. WARFARIN [Concomitant]
     Indication: THROMBOSIS
     Dosage: 5 MG DAILY
  5. GLIPIZIDE [Concomitant]
     Indication: TYPE 2 DIABETES MELLITUS
     Dosage: 2 MG DAILY
  6. COLESTIPOL [Concomitant]
     Indication: CROHN^S DISEASE
  7. IRON [Concomitant]
     Indication: MINERAL SUPPLEMENTATION
  8. VITAMIN B12 [Concomitant]
     Indication: VITAMIN SUPPLEMENTATION
     Dosage: 1000 MG DAILY

REACTIONS (6)
  - Skin exfoliation [Recovering/Resolving]
  - Injection site pain [Recovering/Resolving]
  - Injection site pain [Recovering/Resolving]
  - Local swelling [Recovering/Resolving]
  - Drug ineffective [Unknown]
  - Rash [Unknown]
